FAERS Safety Report 20223786 (Version 1)
Quarter: 2021Q4

REPORT INFORMATION
  Report Type: Spontaneous
  Country: HR (occurrence: HR)
  Receive Date: 20211223
  Receipt Date: 20211223
  Transmission Date: 20220303
  Serious: Yes (Other)
  Sender: FDA-Public Use
  Company Number: HR-002147023-NVSC2021HR270804

PATIENT
  Age: 62 Year
  Sex: Female
  Weight: 74 kg

DRUGS (10)
  1. EXEMESTANE [Suspect]
     Active Substance: EXEMESTANE
     Indication: Breast cancer metastatic
     Dosage: UNK
     Route: 065
     Dates: start: 201303
  2. RIBOCICLIB [Suspect]
     Active Substance: RIBOCICLIB
     Indication: Benign breast neoplasm
     Dosage: 600 MG
     Route: 065
     Dates: start: 202104
  3. RIBOCICLIB [Suspect]
     Active Substance: RIBOCICLIB
     Dosage: 400 MG, 1X/DAY
     Route: 065
  4. FULVESTRANT [Suspect]
     Active Substance: FULVESTRANT
     Dosage: 500 MG
     Route: 030
     Dates: start: 201505
  5. METHOTREXATE [Concomitant]
     Active Substance: METHOTREXATE
     Dosage: UNK
     Route: 065
  6. CYCLOPHOSPHAMIDE [Concomitant]
     Active Substance: CYCLOPHOSPHAMIDE
     Dosage: UNK
     Route: 065
  7. CAPECITABINE [Concomitant]
     Active Substance: CAPECITABINE
     Dosage: 4 MONTHS TOTAL OF ADMINISTRATION WITH PARTIAL ALLEVIATION OF PROBLEMS
     Route: 065
  8. VINORELBINE [Concomitant]
     Active Substance: VINORELBINE TARTRATE
     Dosage: ABOUT 4 MONTHS, THEN FURTHER PROGRESSION IN THE LIVER
     Route: 065
  9. ANASTROZOLE [Concomitant]
     Active Substance: ANASTROZOLE
     Dosage: UNK
     Route: 065
  10. PACLITAXEL [Concomitant]
     Active Substance: PACLITAXEL
     Dosage: UNK
     Route: 042

REACTIONS (10)
  - Neutropenia [Unknown]
  - Osteolysis [Unknown]
  - Neoplasm progression [Unknown]
  - Malaise [Unknown]
  - General physical health deterioration [Unknown]
  - Cough [Unknown]
  - Cholelithiasis [Unknown]
  - Dyspnoea [Unknown]
  - Fatigue [Unknown]
  - Hepatomegaly [Unknown]

NARRATIVE: CASE EVENT DATE: 20191001
